FAERS Safety Report 24194295 (Version 1)
Quarter: 2024Q3

REPORT INFORMATION
  Report Type: Spontaneous
  Country: US (occurrence: None)
  Receive Date: 20240808
  Receipt Date: 20240808
  Transmission Date: 20241017
  Serious: Yes (Hospitalization)
  Sender: Public
  Company Number: None

PATIENT
  Age: 62 Year
  Sex: Female
  Weight: 51.71 kg

DRUGS (2)
  1. BELINOSTAT [Suspect]
     Active Substance: BELINOSTAT
  2. RIBOCICLIB [Concomitant]

REACTIONS (6)
  - Lethargy [None]
  - Hypothermia [None]
  - Hypoglycaemia [None]
  - Acute respiratory failure [None]
  - Hospice care [None]
  - Pneumonia [None]

NARRATIVE: CASE EVENT DATE: 20240505
